FAERS Safety Report 11885315 (Version 2)
Quarter: 2016Q1

REPORT INFORMATION
  Report Type: Spontaneous
  Country: US (occurrence: US)
  Receive Date: 20160104
  Receipt Date: 20160330
  Transmission Date: 20160526
  Serious: Yes (Hospitalization, Other)
  Sender: FDA-Public Use
  Company Number: US-JNJFOC-20151224221

PATIENT
  Age: 9 Year
  Sex: Female
  Weight: 32.9 kg

DRUGS (42)
  1. MORPHINE [Concomitant]
     Active Substance: MORPHINE
     Indication: PAIN
     Route: 042
     Dates: start: 20151021, end: 20151021
  2. ZOFRAN [Concomitant]
     Active Substance: ONDANSETRON HYDROCHLORIDE
     Indication: NAUSEA
     Dosage: EVERY 6 HOURS, AS NECESSARY
     Route: 042
     Dates: start: 20151023, end: 20151025
  3. ATARAX [Concomitant]
     Active Substance: HYDROXYZINE\HYDROXYZINE HYDROCHLORIDE
     Indication: PREMEDICATION
     Route: 048
     Dates: start: 20151027, end: 20151027
  4. DIPRIVAN [Suspect]
     Active Substance: PROPOFOL
     Indication: ANAESTHESIA
     Dosage: AT 13:05
     Route: 065
     Dates: start: 20151021, end: 20151021
  5. BACTRIM [Concomitant]
     Active Substance: SULFAMETHOXAZOLE\TRIMETHOPRIM
     Indication: ANTIFUNGAL PROPHYLAXIS
     Dosage: 800-160 MG PER DAY ON FRIDAY, SATURDAY, SUNDAY
     Route: 048
  6. MARCAIN [Concomitant]
     Active Substance: BUPIVACAINE HYDROCHLORIDE
     Indication: PAIN
     Route: 058
     Dates: start: 20151021, end: 20151021
  7. FENTANYL. [Concomitant]
     Active Substance: FENTANYL
     Indication: PAIN
     Route: 065
     Dates: start: 20151021, end: 20151021
  8. TYLENOL [Concomitant]
     Active Substance: ACETAMINOPHEN
     Indication: PREMEDICATION
     Route: 065
  9. DIPRIVAN [Suspect]
     Active Substance: PROPOFOL
     Indication: ANAESTHESIA
     Dosage: 275 UG/KG/MIN AT 13:31
     Route: 065
     Dates: start: 20151021, end: 20151021
  10. DIPRIVAN [Suspect]
     Active Substance: PROPOFOL
     Indication: ANAESTHESIA
     Dosage: 200 UG/KG/MIN AT 14:04
     Route: 065
     Dates: start: 20151021, end: 20151021
  11. TYLENOL [Concomitant]
     Active Substance: ACETAMINOPHEN
     Indication: PAIN
     Route: 065
  12. CYTOSAR [Concomitant]
     Active Substance: CYTARABINE
     Indication: ACUTE MYELOID LEUKAEMIA
     Route: 037
     Dates: start: 20151021, end: 20151021
  13. ROCEPHIN [Concomitant]
     Active Substance: CEFTRIAXONE SODIUM
     Indication: PYREXIA
     Route: 042
     Dates: start: 20151022, end: 20151022
  14. MARCAIN [Concomitant]
     Active Substance: BUPIVACAINE HYDROCHLORIDE
     Indication: PAIN
     Dosage: AT 13:49
     Route: 058
     Dates: start: 20151021, end: 20151021
  15. CIPRO [Concomitant]
     Active Substance: CIPROFLOXACIN HYDROCHLORIDE
     Indication: NEUTROPENIA
     Route: 048
     Dates: start: 20151112
  16. DIPRIVAN [Suspect]
     Active Substance: PROPOFOL
     Indication: ANAESTHESIA
     Dosage: AT 13:47
     Route: 065
     Dates: start: 20151021, end: 20151021
  17. DIPRIVAN [Suspect]
     Active Substance: PROPOFOL
     Indication: ANAESTHESIA
     Dosage: AT 14:13 STOPPED
     Route: 065
     Dates: start: 20151021
  18. TYLENOL [Concomitant]
     Active Substance: ACETAMINOPHEN
     Indication: PAIN
     Dosage: EVERY 6 HOURS, AS NEEDED
     Route: 065
     Dates: start: 20151022, end: 20151023
  19. MORPHINE [Concomitant]
     Active Substance: MORPHINE
     Indication: PAIN
     Route: 042
     Dates: start: 20151022, end: 20151022
  20. ZOFRAN [Concomitant]
     Active Substance: ONDANSETRON HYDROCHLORIDE
     Indication: VOMITING
     Dosage: EVERY 6 HOURS, AS NECESSARY
     Route: 042
     Dates: start: 20151023, end: 20151025
  21. DOCUSATE SODIUM. [Concomitant]
     Active Substance: DOCUSATE SODIUM
     Indication: CONSTIPATION
     Route: 048
     Dates: start: 20151109, end: 20151110
  22. DACOGEN [Suspect]
     Active Substance: DECITABINE
     Indication: ACUTE MYELOID LEUKAEMIA RECURRENT
     Dosage: EVERY 24 HOURS FOR 5 DOSES
     Route: 042
     Dates: start: 20151023, end: 20151027
  23. DIFLUCAN [Suspect]
     Active Substance: FLUCONAZOLE
     Indication: ANTIFUNGAL PROPHYLAXIS
     Route: 048
     Dates: start: 20151028
  24. MYLOTARG [Suspect]
     Active Substance: GEMTUZUMAB OZOGAMICIN
     Indication: ACUTE MYELOID LEUKAEMIA RECURRENT
     Route: 042
     Dates: start: 20151027, end: 20151027
  25. FENTANYL. [Concomitant]
     Active Substance: FENTANYL
     Indication: PAIN
     Dosage: ADDITIONAL 25 UG RECEIVED AT 13:45
     Route: 065
     Dates: start: 20151021, end: 20151021
  26. ZYLOPRIM [Concomitant]
     Active Substance: ALLOPURINOL
     Indication: ACUTE MYELOID LEUKAEMIA
     Route: 048
     Dates: start: 20151020, end: 20151027
  27. ALLOPURINOL. [Concomitant]
     Active Substance: ALLOPURINOL
     Route: 065
  28. SOLU-MEDROL [Concomitant]
     Active Substance: METHYLPREDNISOLONE SODIUM SUCCINATE
     Indication: PREMEDICATION
     Route: 042
     Dates: start: 20151027, end: 20151027
  29. ZINC OXIDE. [Concomitant]
     Active Substance: ZINC OXIDE
     Indication: PROCTALGIA
     Dosage: ZINC OXIDE 40%, AS NECESSARY
     Route: 061
     Dates: start: 20151105, end: 20151110
  30. DIPRIVAN [Suspect]
     Active Substance: PROPOFOL
     Indication: ANAESTHESIA
     Dosage: AT 13:45
     Route: 065
     Dates: start: 20151021, end: 20151021
  31. TYLENOL [Concomitant]
     Active Substance: ACETAMINOPHEN
     Indication: PREMEDICATION
     Dosage: EVERY 6 HOURS, AS NEEDED
     Route: 065
     Dates: start: 20151022, end: 20151023
  32. CEFAZOLIN SODIUM. [Concomitant]
     Active Substance: CEFAZOLIN SODIUM
     Indication: CENTRAL VENOUS CATHETERISATION
     Route: 042
     Dates: start: 20151021, end: 20151021
  33. ZOFRAN [Concomitant]
     Active Substance: ONDANSETRON HYDROCHLORIDE
     Indication: NAUSEA
     Route: 042
     Dates: start: 20151021, end: 20151021
  34. HEPARIN [Concomitant]
     Active Substance: HEPARIN SODIUM
     Indication: PROPHYLAXIS
     Route: 042
     Dates: start: 20151022
  35. BUPIVACAINE [Concomitant]
     Active Substance: BUPIVACAINE
     Indication: PAIN
     Route: 058
     Dates: start: 20151021, end: 20151021
  36. FORTAZ [Concomitant]
     Active Substance: CEFTAZIDIME SODIUM
     Indication: FEBRILE NEUTROPENIA
     Route: 042
     Dates: start: 20151027, end: 20151029
  37. SUBLIMAZE [Suspect]
     Active Substance: FENTANYL CITRATE
     Indication: SEDATION
     Dosage: ONCE PER 1 MIN AS NECESSARY, RECEIVED TOTAL DOSE OF 30 UG
     Route: 042
     Dates: start: 20151109, end: 20151109
  38. DIPRIVAN [Suspect]
     Active Substance: PROPOFOL
     Indication: ANAESTHESIA
     Dosage: 250 UG/KG/MIN AT 13:06
     Route: 065
     Dates: start: 20151021, end: 20151021
  39. GAMUNEX [Suspect]
     Active Substance: HUMAN IMMUNOGLOBULIN G
     Indication: BLOOD IMMUNOGLOBULIN G DECREASED
     Route: 042
     Dates: start: 20151104, end: 20151104
  40. ZOFRAN [Concomitant]
     Active Substance: ONDANSETRON HYDROCHLORIDE
     Indication: VOMITING
     Route: 042
     Dates: start: 20151021, end: 20151021
  41. HEPARIN [Concomitant]
     Active Substance: HEPARIN SODIUM
     Indication: PROPHYLAXIS
     Dosage: 50 UNITS, 100 U/ML FLUSH WAS THE CONCENTRATION
     Route: 042
     Dates: start: 20151021, end: 20151021
  42. VANCOCIN [Concomitant]
     Active Substance: VANCOMYCIN HYDROCHLORIDE
     Indication: PYREXIA
     Dosage: INTRAVENOUS PIGGYBACK (IVPB)
     Route: 042
     Dates: start: 20151027, end: 20151029

REACTIONS (10)
  - Platelet count decreased [Recovered/Resolved]
  - Constipation [Recovered/Resolved]
  - Febrile neutropenia [Recovered/Resolved]
  - Proctalgia [Recovered/Resolved]
  - Hypotension [Recovered/Resolved]
  - Pyrexia [Recovered/Resolved]
  - Anaemia [Recovered/Resolved]
  - Alanine aminotransferase increased [Recovered/Resolved]
  - Bone pain [Recovered/Resolved]
  - Neutrophil count decreased [Recovering/Resolving]

NARRATIVE: CASE EVENT DATE: 20151027
